FAERS Safety Report 7340633-6 (Version None)
Quarter: 2011Q1

REPORT INFORMATION
  Report Type: 
  Country: None (occurrence: None)
  Receive Date: 20110309
  Receipt Date: 20110303
  Transmission Date: 20110831
  Serious: Yes (Hospitalization, Other)
  Sender: FDA-Public Use
  Company Number: US-JNJFOC-20100704625

PATIENT
  Sex: Male

DRUGS (5)
  1. HUMULIN 70/30 [Concomitant]
     Indication: DIABETES MELLITUS
  2. LEVOTHYROXINE [Concomitant]
     Indication: HYPOTHYROIDISM
  3. LEVAQUIN [Suspect]
     Indication: BRONCHITIS
     Route: 048
  4. SOTALOL HYDROCHLORIDE [Concomitant]
     Indication: ATRIAL FIBRILLATION
  5. LEVAQUIN [Suspect]
     Indication: PRODUCT USED FOR UNKNOWN INDICATION
     Route: 048

REACTIONS (1)
  - ROTATOR CUFF SYNDROME [None]
